FAERS Safety Report 26045932 (Version 1)
Quarter: 2025Q4

REPORT INFORMATION
  Report Type: Spontaneous
  Country: AU (occurrence: AU)
  Receive Date: 20251114
  Receipt Date: 20251114
  Transmission Date: 20260117
  Serious: Yes (Life-Threatening, Hospitalization, Other)
  Sender: RANBAXY
  Company Number: AU-SUN PHARMACEUTICAL INDUSTRIES INC-2025R1-536235

PATIENT
  Age: 16 Year
  Sex: Female

DRUGS (12)
  1. VECURONIUM [Suspect]
     Active Substance: VECURONIUM BROMIDE
     Indication: Hypotonia
     Dosage: 4 MILLIGRAM
     Route: 040
  2. VECURONIUM [Suspect]
     Active Substance: VECURONIUM BROMIDE
     Dosage: 404 MILLIGRAM
     Route: 040
  3. METHYLPREDNISOLONE [Suspect]
     Active Substance: METHYLPREDNISOLONE
     Indication: Prophylaxis against transplant rejection
     Dosage: 1000 MILLIGRAM
     Route: 065
  4. AMPHOTERICIN B [Concomitant]
     Active Substance: AMPHOTERICIN B
     Indication: Product used for unknown indication
     Dosage: UNK
     Route: 065
  5. AZATHIOPRINE [Concomitant]
     Active Substance: AZATHIOPRINE
     Indication: Prophylaxis against transplant rejection
     Dosage: UNK
     Route: 065
  6. CEFOTAXIME SODIUM [Concomitant]
     Active Substance: CEFOTAXIME SODIUM
     Indication: Product used for unknown indication
     Dosage: UNK
     Route: 065
  7. CYCLOSPORINE [Concomitant]
     Active Substance: CYCLOSPORINE
     Indication: Prophylaxis against transplant rejection
     Dosage: UNK
     Route: 065
  8. DOPAMINE HYDROCHLORIDE [Concomitant]
     Active Substance: DOPAMINE HYDROCHLORIDE
     Indication: Hypotension
     Dosage: UNK
     Route: 065
  9. MIDAZOLAM [Concomitant]
     Active Substance: MIDAZOLAM
     Indication: Sedation
     Dosage: UNK
     Route: 065
  10. MORPHINE [Concomitant]
     Active Substance: MORPHINE
     Indication: Sedation
     Dosage: UNK
     Route: 065
  11. MUROMONAB-CD3 [Concomitant]
     Active Substance: MUROMONAB-CD3
     Indication: Prophylaxis against transplant rejection
     Dosage: UNK
     Route: 065
  12. VITAMIN K1 [Concomitant]
     Active Substance: PHYTONADIONE
     Indication: Electrolyte substitution therapy

REACTIONS (2)
  - Necrotising myositis [Recovered/Resolved]
  - Off label use [Unknown]
